FAERS Safety Report 8941751 (Version 1)
Quarter: 2012Q4

REPORT INFORMATION
  Report Type: 
  Country: AR (occurrence: AR)
  Receive Date: 20121203
  Receipt Date: 20121203
  Transmission Date: 20130627
  Serious: Yes (Other)
  Sender: FDA-Public Use
  Company Number: PHHY2012AR110541

PATIENT
  Sex: Female

DRUGS (1)
  1. EXELON PATCH [Suspect]
     Indication: AMNESIA
     Dosage: 4.6 mg/24 hours
     Route: 062
     Dates: start: 201209, end: 201211

REACTIONS (1)
  - Uterine polyp [Recovered/Resolved]
